FAERS Safety Report 9703901 (Version 1)
Quarter: 2013Q4

REPORT INFORMATION
  Report Type: Spontaneous
  Country: DK (occurrence: DK)
  Receive Date: 20131122
  Receipt Date: 20131122
  Transmission Date: 20140711
  Serious: Yes (Hospitalization, Other)
  Sender: FDA-Public Use
  Company Number: DK-ELI_LILLY_AND_COMPANY-DK201311004252

PATIENT
  Sex: Female

DRUGS (5)
  1. ZYPREXA [Suspect]
     Indication: MAJOR DEPRESSION
     Dosage: 5 MG, SINGLE
     Route: 065
  2. ZYPREXA [Suspect]
     Dosage: 1 DF, UNKNOWN
     Route: 065
     Dates: start: 20060802, end: 20061218
  3. RISPERDAL [Concomitant]
     Indication: PRODUCT USED FOR UNKNOWN INDICATION
     Dosage: 1 DF, UNKNOWN
     Route: 065
  4. TRUXAL                             /00012101/ [Concomitant]
     Indication: PRODUCT USED FOR UNKNOWN INDICATION
     Dosage: 1 DF, UNKNOWN
     Route: 065
  5. RIVOTRIL [Concomitant]
     Indication: PRODUCT USED FOR UNKNOWN INDICATION
     Dosage: 1 DF, UNKNOWN
     Route: 065

REACTIONS (9)
  - Suicidal ideation [Unknown]
  - Intentional self-injury [Unknown]
  - Hallucination, auditory [Unknown]
  - Eating disorder [Unknown]
  - Skin striae [Unknown]
  - Cutis laxa [Unknown]
  - Self esteem decreased [Unknown]
  - Schizophrenia [Unknown]
  - Weight increased [Unknown]
